FAERS Safety Report 25199539 (Version 4)
Quarter: 2025Q2

REPORT INFORMATION
  Report Type: Report from Study
  Country: US (occurrence: US)
  Receive Date: 20250415
  Receipt Date: 20250626
  Transmission Date: 20250717
  Serious: Yes (Hospitalization, Other)
  Sender: TAKEDA
  Company Number: US-TAKEDA-2024TUS062547

PATIENT
  Age: 60 Year
  Sex: Female
  Weight: 109 kg

DRUGS (43)
  1. LANADELUMAB [Suspect]
     Active Substance: LANADELUMAB
     Indication: Hereditary angioedema
     Dosage: 300 MILLIGRAM, Q2WEEKS
     Dates: start: 20240426
  2. LANADELUMAB [Suspect]
     Active Substance: LANADELUMAB
     Indication: Angioedema
     Dosage: 300 MILLIGRAM, Q2WEEKS
     Dates: start: 20240501
  3. LANADELUMAB [Suspect]
     Active Substance: LANADELUMAB
     Indication: Immune system disorder
     Dosage: 300 MILLIGRAM, Q2WEEKS
  4. LANADELUMAB [Suspect]
     Active Substance: LANADELUMAB
     Dosage: UNK UNK, Q2WEEKS
  5. LANADELUMAB [Suspect]
     Active Substance: LANADELUMAB
     Dosage: UNK UNK, Q2WEEKS
  6. LANADELUMAB [Suspect]
     Active Substance: LANADELUMAB
     Dosage: UNK UNK, Q2WEEKS
  7. LANADELUMAB [Suspect]
     Active Substance: LANADELUMAB
     Dosage: UNK UNK, Q2WEEKS
  8. LANADELUMAB [Suspect]
     Active Substance: LANADELUMAB
     Dosage: 300 MILLIGRAM, Q2WEEKS
  9. ICATIBANT ACETATE [Suspect]
     Active Substance: ICATIBANT ACETATE
     Indication: Angioedema
  10. ICATIBANT ACETATE [Suspect]
     Active Substance: ICATIBANT ACETATE
     Indication: Immune system disorder
  11. ICATIBANT [Suspect]
     Active Substance: ICATIBANT ACETATE
     Indication: Immune system disorder
  12. ICATIBANT [Suspect]
     Active Substance: ICATIBANT ACETATE
  13. DILTIAZEM [Suspect]
     Active Substance: DILTIAZEM
     Indication: Product used for unknown indication
  14. GAMMAGARD LIQUID [Concomitant]
     Active Substance: HUMAN IMMUNOGLOBULIN G
  15. TRELEGY ELLIPTA [Concomitant]
     Active Substance: FLUTICASONE FUROATE\UMECLIDINIUM BROMIDE\VILANTEROL TRIFENATATE
  16. PLAQUENIL [Concomitant]
     Active Substance: HYDROXYCHLOROQUINE SULFATE
  17. MELOXICAM [Concomitant]
     Active Substance: MELOXICAM
  18. NORVASC [Concomitant]
     Active Substance: AMLODIPINE BESYLATE
  19. LOSARTAN POTASSIUM [Concomitant]
     Active Substance: LOSARTAN POTASSIUM
  20. METOPROLOL TARTRATE [Concomitant]
     Active Substance: METOPROLOL TARTRATE
  21. HYDROCHLOROTHIAZIDE [Concomitant]
     Active Substance: HYDROCHLOROTHIAZIDE
  22. SYNTHROID [Concomitant]
     Active Substance: LEVOTHYROXINE SODIUM
  23. ZOCOR [Concomitant]
     Active Substance: SIMVASTATIN
  24. NEURONTIN [Concomitant]
     Active Substance: GABAPENTIN
  25. SINGULAIR [Concomitant]
     Active Substance: MONTELUKAST SODIUM
  26. FLUTICASONE PROPIONATE [Concomitant]
     Active Substance: FLUTICASONE PROPIONATE
  27. CETIRIZINE HCL [Concomitant]
     Active Substance: CETIRIZINE HYDROCHLORIDE
  28. ALBUTEROL SULFATE [Concomitant]
     Active Substance: ALBUTEROL SULFATE
  29. OMEPRAZOLE [Concomitant]
     Active Substance: OMEPRAZOLE
  30. RELAFEN [Concomitant]
     Active Substance: NABUMETONE
  31. CYMBALTA [Concomitant]
     Active Substance: DULOXETINE HYDROCHLORIDE
  32. METOPROLOL [Concomitant]
     Active Substance: METOPROLOL
  33. METFORMIN [Concomitant]
     Active Substance: METFORMIN HYDROCHLORIDE
  34. LEVOTHYROXINE [Concomitant]
     Active Substance: LEVOTHYROXINE
  35. SIMVASTATIN [Concomitant]
     Active Substance: SIMVASTATIN
  36. MONTELUKAST [Concomitant]
     Active Substance: MONTELUKAST
  37. ALENDRONATE [Concomitant]
     Active Substance: ALENDRONATE SODIUM
  38. AZITHROMYCIN [Concomitant]
     Active Substance: AZITHROMYCIN
  39. HYDROXYCHLOROQUINE [Concomitant]
     Active Substance: HYDROXYCHLOROQUINE
  40. LANTUS [Concomitant]
     Active Substance: INSULIN GLARGINE
  41. PREDNISONE [Concomitant]
     Active Substance: PREDNISONE
  42. BENZONATATE [Concomitant]
     Active Substance: BENZONATATE
  43. GABAPENTIN [Concomitant]
     Active Substance: GABAPENTIN

REACTIONS (19)
  - Asthmatic crisis [Not Recovered/Not Resolved]
  - Cardiac disorder [Not Recovered/Not Resolved]
  - Hereditary angioedema [Not Recovered/Not Resolved]
  - Therapeutic response shortened [Unknown]
  - Osteopenia [Unknown]
  - Fluid retention [Unknown]
  - Cough [Unknown]
  - Swelling [Unknown]
  - Dyspnoea [Unknown]
  - Oxygen saturation decreased [Unknown]
  - Blood glucose abnormal [Unknown]
  - Chest discomfort [Unknown]
  - Sleep apnoea syndrome [Unknown]
  - Rhinitis [Unknown]
  - Nasal congestion [Unknown]
  - Fatigue [Unknown]
  - Somnolence [Unknown]
  - Abdominal pain upper [Unknown]
  - Hiatus hernia [Unknown]

NARRATIVE: CASE EVENT DATE: 20240619
